FAERS Safety Report 15523087 (Version 1)
Quarter: 2018Q4

REPORT INFORMATION
  Report Type: Spontaneous
  Country: US (occurrence: US)
  Receive Date: 20181015
  Receipt Date: 20181015
  Transmission Date: 20190205
  Serious: No
  Sender: FDA-Public Use
  Company Number: None

PATIENT
  Age: 58 Year
  Sex: Female
  Weight: 69.8 kg

DRUGS (6)
  1. SIMVASTATIN. [Concomitant]
     Active Substance: SIMVASTATIN
  2. OMEPRAZOLE. [Concomitant]
     Active Substance: OMEPRAZOLE
  3. LEVOTHROXINE [Concomitant]
     Active Substance: LEVOTHYROXINE
  4. ATIVAN [Concomitant]
     Active Substance: LORAZEPAM
  5. IBRANCE [Suspect]
     Active Substance: PALBOCICLIB
     Indication: BREAST CANCER
     Route: 048
     Dates: start: 20160419, end: 20180928
  6. FASLODEX [Concomitant]
     Active Substance: FULVESTRANT

REACTIONS (1)
  - Metastases to liver [None]

NARRATIVE: CASE EVENT DATE: 20180928
